FAERS Safety Report 23081699 (Version 2)
Quarter: 2024Q2

REPORT INFORMATION
  Report Type: Spontaneous
  Country: US (occurrence: US)
  Receive Date: 20231019
  Receipt Date: 20240611
  Transmission Date: 20240716
  Serious: Yes (Death, Hospitalization, Other)
  Sender: FDA-Public Use
  Company Number: US-ABBVIE-5456464

PATIENT
  Sex: Female
  Weight: 61.234 kg

DRUGS (3)
  1. SYNTHROID [Suspect]
     Active Substance: LEVOTHYROXINE SODIUM
     Indication: Hypothyroidism
     Dosage: 125 MICROGRAM?START DATE TEXT: AT LEAST 10 YEARS
     Route: 048
     Dates: start: 2013, end: 202308
  2. INDOLOL [Concomitant]
     Indication: Palpitations
  3. EPIPEN [Concomitant]
     Active Substance: EPINEPHRINE
     Indication: Hypersensitivity
     Dosage: AS NEEDED

REACTIONS (5)
  - Hepatic cirrhosis [Fatal]
  - Urinary tract infection [Not Recovered/Not Resolved]
  - Kidney infection [Unknown]
  - Renal failure [Fatal]
  - Heart rate abnormal [Unknown]

NARRATIVE: CASE EVENT DATE: 20190101
